FAERS Safety Report 9862878 (Version 1)
Quarter: 2014Q1

REPORT INFORMATION
  Report Type: Spontaneous
  Country: US (occurrence: US)
  Receive Date: 20140203
  Receipt Date: 20140203
  Transmission Date: 20141002
  Serious: No
  Sender: FDA-Public Use
  Company Number: US-009507513-1402USA000474

PATIENT
  Age: 29 Year
  Sex: Female

DRUGS (4)
  1. CLARITIN-D [Suspect]
     Indication: RESPIRATORY TRACT CONGESTION
     Dosage: UNK, UNKNOWN
     Route: 048
  2. CLARITIN-D [Suspect]
     Indication: RHINORRHOEA
  3. CLARITIN-D [Suspect]
     Indication: HYPERSENSITIVITY
  4. CLARITIN-D [Suspect]
     Indication: COUGH

REACTIONS (4)
  - Sinus headache [Unknown]
  - Hot flush [Unknown]
  - Hyperhidrosis [Unknown]
  - Insomnia [Unknown]
